FAERS Safety Report 24252622 (Version 1)
Quarter: 2024Q3

REPORT INFORMATION
  Report Type: Spontaneous
  Country: DE (occurrence: None)
  Receive Date: 20240827
  Receipt Date: 20240827
  Transmission Date: 20241017
  Serious: Yes (Other)
  Sender: ASTRAZENECA
  Company Number: 2024A188824

PATIENT
  Sex: Female

DRUGS (1)
  1. TAGRISSO [Suspect]
     Active Substance: OSIMERTINIB
     Dosage: 80 ML/KG UNKNOWN
     Route: 048
     Dates: start: 201910

REACTIONS (6)
  - Atelectasis [Unknown]
  - Pneumonia [Unknown]
  - Peripheral swelling [Unknown]
  - Arthralgia [Unknown]
  - Dry skin [Unknown]
  - Acne [Unknown]
